FAERS Safety Report 5426300-4 (Version None)
Quarter: 2007Q3

REPORT INFORMATION
  Report Type: 
  Country: None (occurrence: None)
  Receive Date: 20070827
  Receipt Date: 20070814
  Transmission Date: 20080115
  Serious: Yes (Death, Hospitalization)
  Sender: FDA-Public Use
  Company Number: US-ROCHE-508411

PATIENT
  Age: 48 Year
  Sex: Male
  Weight: 88.7 kg

DRUGS (11)
  1. CAPECITABINE [Suspect]
     Dosage: GIVEN ON DAYS ONE TO FIFTEEN OF EACH THREE-WEEK-CYCLE.
     Route: 048
     Dates: start: 20070604
  2. BEVACIZUMAB [Suspect]
     Dosage: GIVEN ON DAY ONE OF EACH 3-WEEK-CYCLE.
     Route: 042
     Dates: start: 20070604
  3. OXALIPLATIN [Suspect]
     Dosage: DOSAGE FORM REPORTED AS IVF. GIVEN ON DAY ONE OF EACH 3-WEEK-CYCLE.
     Route: 042
     Dates: start: 20070604
  4. ROZEREM [Concomitant]
     Dates: start: 20060101
  5. CLOMIPRAMINE HCL [Concomitant]
     Dates: start: 20050101
  6. FLUOXETINE [Concomitant]
     Dates: start: 20040101
  7. SEROQUEL [Concomitant]
     Dates: start: 20040101
  8. MORPHINE SULFATE [Concomitant]
     Dates: start: 20070601
  9. COMPAZINE [Concomitant]
     Dates: start: 20070604
  10. ANZEMET [Concomitant]
     Dates: start: 20070604
  11. OXYCODONE HCL [Concomitant]
     Dates: start: 20070716

REACTIONS (19)
  - AGGRESSION [None]
  - ALANINE AMINOTRANSFERASE INCREASED [None]
  - ASPARTATE AMINOTRANSFERASE INCREASED [None]
  - BLOOD ALBUMIN DECREASED [None]
  - BLOOD SODIUM DECREASED [None]
  - BLOOD UREA INCREASED [None]
  - CARBON DIOXIDE DECREASED [None]
  - CONFUSIONAL STATE [None]
  - HAEMATOCRIT DECREASED [None]
  - HAEMOGLOBIN DECREASED [None]
  - HALLUCINATION, AUDITORY [None]
  - INCOHERENT [None]
  - LUNG INFILTRATION [None]
  - MENTAL STATUS CHANGES [None]
  - METABOLIC ENCEPHALOPATHY [None]
  - PLATELET COUNT DECREASED [None]
  - PROTEIN TOTAL DECREASED [None]
  - RED BLOOD CELL COUNT DECREASED [None]
  - RESTLESSNESS [None]
